FAERS Safety Report 16095351 (Version 11)
Quarter: 2020Q4

REPORT INFORMATION
  Report Type: Other
  Country: CA (occurrence: CA)
  Receive Date: 20190320
  Receipt Date: 20201020
  Transmission Date: 20210113
  Serious: Yes (Other)
  Sender: FDA-Public Use
  Company Number: CA-BECTON DICKINSON-2019BDN00108

PATIENT
  Age: 42 Year
  Sex: Female
  Weight: 81 kg

DRUGS (78)
  1. ACETAMINOPHEN. [Suspect]
     Active Substance: ACETAMINOPHEN
     Dosage: 325 MG
  2. ACETAMINOPHEN/OXYCODONE HYDROCHLORIDE/OXYCODONE TEREPHTHALATE [Suspect]
     Active Substance: ACETAMINOPHEN\OXYCODONE HYDROCHLORIDE\OXYCODONE TEREPHTHALATE
  3. CIMZIA [Suspect]
     Active Substance: CERTOLIZUMAB PEGOL
     Dosage: 200 MG, 2 EVERY 1 MONTH
     Route: 058
  4. OXYCODONE [Suspect]
     Active Substance: OXYCODONE
  5. OXYCODONE HYDROCHLORIDE. [Suspect]
     Active Substance: OXYCODONE HYDROCHLORIDE
  6. SIMPONI [Suspect]
     Active Substance: GOLIMUMAB
     Route: 058
  7. CHOLECALCIFEROL [Concomitant]
     Active Substance: CHOLECALCIFEROL
  8. DESOGESTREL/ETHINYL ESTRADIOL [Concomitant]
     Active Substance: DESOGESTREL\ETHINYL ESTRADIOL
  9. PANTOPRAZOLE SODIUM. [Concomitant]
     Active Substance: PANTOPRAZOLE SODIUM
  10. PANTOPRAZOLE SODIUM ANHYDROUS [Concomitant]
     Active Substance: PANTOPRAZOLE SODIUM ANHYDROUS
  11. REACTINE [Concomitant]
  12. CHLORHEXIDINE [Suspect]
     Active Substance: CHLORHEXIDINE
  13. CIMZIA [Suspect]
     Active Substance: CERTOLIZUMAB PEGOL
     Dosage: 400 MG, 2 EVERY 1 MONTH
     Route: 058
  14. OXYCODONE AND ACETAMINOPHEN [Suspect]
     Active Substance: ACETAMINOPHEN\OXYCODONE HYDROCHLORIDE
  15. PERIOGARD ALCOHOL FREE [Suspect]
     Active Substance: CHLORHEXIDINE GLUCONATE
     Route: 002
  16. SULFAMETHOXAZOLE AND TRIMETHOPRIM [Suspect]
     Active Substance: SULFAMETHOXAZOLE\TRIMETHOPRIM
  17. ALFACALCIDOL [Concomitant]
     Active Substance: ALFACALCIDOL
  18. APO-ZOPICLONE [Concomitant]
     Active Substance: ZOPICLONE
  19. CETIRIZINE DIHYDROCHLORIDE [Concomitant]
     Active Substance: CETIRIZINE HYDROCHLORIDE
  20. IBUPROFEN. [Concomitant]
     Active Substance: IBUPROFEN
  21. VENTOLIN [Concomitant]
     Active Substance: ALBUTEROL SULFATE
  22. CIMZIA [Suspect]
     Active Substance: CERTOLIZUMAB PEGOL
     Dosage: 400 MG CYCLICAL
     Route: 058
  23. LEFLUNOMIDE. [Suspect]
     Active Substance: LEFLUNOMIDE
     Dosage: UNK
     Route: 048
  24. METHOTREXATE SODIUM. [Suspect]
     Active Substance: METHOTREXATE SODIUM
  25. ARAVA [Concomitant]
     Active Substance: LEFLUNOMIDE
  26. CAMELLIA SINENSIS [Concomitant]
     Active Substance: TEA LEAF
  27. HYDROXYCHLOROQUINE [Concomitant]
     Active Substance: HYDROXYCHLOROQUINE
  28. HYDROXYCHLOROQUINE SULFATE. [Concomitant]
     Active Substance: HYDROXYCHLOROQUINE SULFATE
  29. ONE ALPHA [Concomitant]
     Active Substance: ALFACALCIDOL
  30. PLAQUENIL [Concomitant]
     Active Substance: HYDROXYCHLOROQUINE SULFATE
  31. VITAMIN D [Concomitant]
     Active Substance: VITAMIN D NOS
  32. VITAMIN E [Concomitant]
     Active Substance: .ALPHA.-TOCOPHEROL
  33. LEFLUNOMIDE. [Suspect]
     Active Substance: LEFLUNOMIDE
     Dosage: UNK
  34. OXYCODONE-ACETAMINOPHEN [Suspect]
     Active Substance: ACETAMINOPHEN\OXYCODONE HYDROCHLORIDE
  35. CAMELLIA SINENSIS/D-ALPHA TOCOPHEROL/FISH OIL/VITAMIN D3 [Concomitant]
  36. ERGOCALCIFEROL. [Concomitant]
     Active Substance: ERGOCALCIFEROL
  37. TEA [Concomitant]
     Active Substance: TEA LEAF
  38. TYLENOL [Concomitant]
     Active Substance: ACETAMINOPHEN
  39. VITAMIN D3 [Concomitant]
     Active Substance: CHOLECALCIFEROL
  40. CHLORAPREP [Suspect]
     Active Substance: CHLORHEXIDINE GLUCONATE\ISOPROPYL ALCOHOL
     Indication: INFECTION PROPHYLAXIS
     Route: 061
  41. METHOTREXATE. [Suspect]
     Active Substance: METHOTREXATE
  42. CO-ENZYME Q10 [UBIDECARENONE] [Concomitant]
  43. GREEN TEA TINCTURE [Concomitant]
     Dosage: UNK
  44. PANTOPRAZOLE [Concomitant]
     Active Substance: PANTOPRAZOLE
  45. ACTEMRA [Suspect]
     Active Substance: TOCILIZUMAB
  46. ARAVA [Suspect]
     Active Substance: LEFLUNOMIDE
  47. CHOLECALCIFEROL [Suspect]
     Active Substance: CHOLECALCIFEROL
  48. CIMZIA [Suspect]
     Active Substance: CERTOLIZUMAB PEGOL
     Indication: RHEUMATOID ARTHRITIS
     Dosage: 400 MG
     Route: 058
  49. CIMZIA [Suspect]
     Active Substance: CERTOLIZUMAB PEGOL
     Indication: RHEUMATOID ARTHRITIS
     Dosage: 400 MG CYCLICAL
     Route: 058
  50. CIMZIA [Suspect]
     Active Substance: CERTOLIZUMAB PEGOL
     Dosage: 400 MG
     Route: 058
  51. PERIOGARD [Suspect]
     Active Substance: CHLORHEXIDINE GLUCONATE
     Route: 002
  52. BIOTONE EFA [Concomitant]
  53. CETIRIZINE HYDROCHLORIDE. [Concomitant]
     Active Substance: CETIRIZINE HYDROCHLORIDE
  54. FISH OIL [Concomitant]
     Active Substance: FISH OIL
  55. PREDNISONE. [Concomitant]
     Active Substance: PREDNISONE
  56. SALBUTAMOL [Concomitant]
     Active Substance: ALBUTEROL
  57. ACT OXYCODONE CR [Suspect]
     Active Substance: ACETAMINOPHEN\OXYCODONE HYDROCHLORIDE
  58. CHLORHEXIDINE GLUCONATE ORAL RINSE [Suspect]
     Active Substance: CHLORHEXIDINE GLUCONATE
  59. CIMZIA [Suspect]
     Active Substance: CERTOLIZUMAB PEGOL
     Dosage: 400 MG CYCLICAL
  60. CIMZIA [Suspect]
     Active Substance: CERTOLIZUMAB PEGOL
     Dosage: UNK
     Route: 058
  61. ORENCIA [Suspect]
     Active Substance: ABATACEPT
  62. D-ALPHA TOCOPHEROL [Concomitant]
     Active Substance: .ALPHA.-TOCOPHEROL, D-
  63. PANTOPAC [Concomitant]
     Active Substance: AMOXICILLIN\CLARITHROMYCIN\PANTOPRAZOLE
  64. VITAMIN C [Concomitant]
     Active Substance: ASCORBIC ACID
  65. VITAMIN D3 [Concomitant]
     Active Substance: CHOLECALCIFEROL
  66. ZOPICLONE [Concomitant]
     Active Substance: ZOPICLONE
  67. ENBREL [Suspect]
     Active Substance: ETANERCEPT
     Indication: RHEUMATOID ARTHRITIS
     Route: 058
  68. ENBREL [Suspect]
     Active Substance: ETANERCEPT
     Dosage: UNK
  69. OXYCODONE TEREPHTHALATE [Suspect]
     Active Substance: OXYCODONE TEREPHTHALATE
  70. OXYCODONE HYDROCHLORIDE. [Suspect]
     Active Substance: OXYCODONE HYDROCHLORIDE
  71. CETIRIZINE [Concomitant]
     Active Substance: CETIRIZINE HYDROCHLORIDE
  72. DESOGESTREL [Concomitant]
     Active Substance: DESOGESTREL
  73. ETHINYL ESTRADIOL [Concomitant]
     Active Substance: ETHINYL ESTRADIOL
  74. OMEGA-3 ACIDS [Concomitant]
     Active Substance: OMEGA-3 FATTY ACIDS
  75. PANTOLOC [Concomitant]
     Active Substance: PANTOPRAZOLE SODIUM
  76. PANTOPRAZOLE SODIUM FOR INJECTION [Concomitant]
     Active Substance: PANTOPRAZOLE SODIUM
     Route: 042
  77. VITAMIN C [Concomitant]
     Active Substance: ASCORBIC ACID
  78. VITAMIN D3 1000 IU [Concomitant]

REACTIONS (23)
  - Joint swelling [Unknown]
  - Muscle spasticity [Unknown]
  - Night sweats [Unknown]
  - Pain [Unknown]
  - Asthenia [Unknown]
  - Rash [Unknown]
  - Off label use [Unknown]
  - Ear pain [Unknown]
  - Incorrect route of product administration [Unknown]
  - Pruritus [Unknown]
  - Vomiting [Unknown]
  - Body temperature increased [Unknown]
  - Lower respiratory tract infection [Unknown]
  - Abdominal pain upper [Unknown]
  - Contraindicated product administered [Unknown]
  - Diarrhoea [Unknown]
  - Insomnia [Unknown]
  - Sinusitis [Unknown]
  - Headache [Unknown]
  - Peripheral swelling [Unknown]
  - Respiratory disorder [Unknown]
  - Back pain [Unknown]
  - Urticaria [Unknown]
